FAERS Safety Report 7866111-3 (Version None)
Quarter: 2011Q4

REPORT INFORMATION
  Report Type: 
  Country: None (occurrence: None)
  Receive Date: 20111028
  Receipt Date: 20111017
  Transmission Date: 20120403
  Serious: Yes (Other)
  Sender: FDA-Public Use
  Company Number: CA-AMGEN-CANSP2011041062

PATIENT
  Age: 60 Year
  Sex: Female
  Weight: 63 kg

DRUGS (5)
  1. NAPROSYN [Concomitant]
     Dosage: 500 UNK, UNK
     Route: 048
  2. IMURAN [Concomitant]
     Dosage: 5 UNK, BID
     Route: 048
  3. ENBREL [Suspect]
     Indication: RHEUMATOID ARTHRITIS
     Dosage: 50 MG, QWK
     Dates: start: 20090416
  4. OLMETRACK [Concomitant]
     Dosage: 40 UNK, UNK
     Route: 048
  5. AROMASIN [Concomitant]
     Dosage: 25 UNK, UNK

REACTIONS (2)
  - METASTASES TO LYMPH NODES [None]
  - BREAST CANCER FEMALE [None]
